FAERS Safety Report 11732597 (Version 1)
Quarter: 2015Q4

REPORT INFORMATION
  Report Type: Spontaneous
  Country: US (occurrence: US)
  Receive Date: 20151113
  Receipt Date: 20151113
  Transmission Date: 20160304
  Serious: No
  Sender: FDA-Public Use
  Company Number: US-GLENMARK PHARMACEUTICALS INC, USA.-2014GMK011389

PATIENT
  Age: 63 Year
  Sex: Female

DRUGS (1)
  1. VERAPAMIL [Suspect]
     Active Substance: VERAPAMIL HYDROCHLORIDE
     Dosage: 1 DF, HS
     Route: 048
     Dates: start: 20140917, end: 20140917

REACTIONS (8)
  - Palpitations [Recovered/Resolved]
  - Speech disorder [Recovered/Resolved]
  - Hypotension [Recovered/Resolved]
  - Product use issue [Unknown]
  - Dizziness [Recovered/Resolved]
  - Abdominal pain upper [Recovered/Resolved]
  - Peripheral coldness [Recovered/Resolved]
  - Product substitution issue [None]

NARRATIVE: CASE EVENT DATE: 20140918
